FAERS Safety Report 6316883-4 (Version None)
Quarter: 2009Q3

REPORT INFORMATION
  Report Type: 
  Country: None (occurrence: None)
  Receive Date: 20090820
  Receipt Date: 20090812
  Transmission Date: 20100115
  Serious: Yes (Death)
  Sender: FDA-Public Use
  Company Number: FR-GENENTECH-288764

PATIENT
  Age: 46 Year
  Sex: Female

DRUGS (2)
  1. AVASTIN [Suspect]
     Indication: BREAST CANCER
     Dosage: 670 MG, Q2W
     Route: 065
     Dates: start: 20080819
  2. TAXOL [Suspect]
     Indication: BREAST CANCER
     Dosage: 145.12 MG, 1/WEEK
     Route: 065
     Dates: start: 20080819, end: 20081120

REACTIONS (2)
  - ASCITES [None]
  - HEPATIC FAILURE [None]
